FAERS Safety Report 5094085-X (Version None)
Quarter: 2006Q3

REPORT INFORMATION
  Report Type: 
  Country: None (occurrence: None)
  Receive Date: 20060829
  Receipt Date: 20060815
  Transmission Date: 20061208
  Serious: Yes (Hospitalization)
  Sender: FDA-Public Use
  Company Number: A-JP2006-12894

PATIENT
  Age: 47 Year
  Sex: Female
  Weight: 41 kg

DRUGS (18)
  1. TRACLEER [Suspect]
     Indication: PULMONARY HYPERTENSION
     Dosage: SEE IMAGE
     Route: 048
     Dates: start: 20060315, end: 20060319
  2. TRACLEER [Suspect]
     Indication: PULMONARY HYPERTENSION
     Dosage: SEE IMAGE
     Route: 048
     Dates: start: 20060320, end: 20060327
  3. TRACLEER [Suspect]
     Indication: PULMONARY HYPERTENSION
     Dosage: SEE IMAGE
     Route: 048
     Dates: start: 20060328, end: 20060403
  4. TRACLEER [Suspect]
     Indication: PULMONARY HYPERTENSION
     Dosage: SEE IMAGE
     Route: 048
     Dates: start: 20060404
  5. DIMETHICONE [Concomitant]
  6. BIFIDOBACTERIUM [Concomitant]
  7. CHINESE HERB [Concomitant]
  8. PILSICAINIDE HYDROCHLORIDE [Concomitant]
  9. DIGESTIVES, INCL ENZYMES [Concomitant]
  10. TEPRENONE [Concomitant]
  11. PREDNISOLONE [Concomitant]
  12. ALFACALCIDOL [Concomitant]
  13. DIGOXIN [Concomitant]
  14. SENNOSIDE A [Concomitant]
  15. AMBROXOL HYDROCHLORIDE [Concomitant]
  16. NIZATIDINE [Concomitant]
  17. WARFARIN SODIUM [Concomitant]
  18. OXYGEN [Concomitant]

REACTIONS (6)
  - ALANINE AMINOTRANSFERASE INCREASED [None]
  - ASPARTATE AMINOTRANSFERASE INCREASED [None]
  - HEADACHE [None]
  - LIVER FUNCTION TEST ABNORMAL [None]
  - SUPRAVENTRICULAR TACHYCARDIA [None]
  - URINARY TRACT INFECTION [None]
